FAERS Safety Report 10086560 (Version 3)
Quarter: 2014Q2

REPORT INFORMATION
  Report Type: Report from Study
  Country: KR (occurrence: KR)
  Receive Date: 20140418
  Receipt Date: 20140423
  Transmission Date: 20141212
  Serious: Yes (Other)
  Sender: FDA-Public Use
  Company Number: KR-OTSUKA-JP-2012-14969

PATIENT
  Age: 59 Year
  Sex: Male

DRUGS (5)
  1. OPC-13013 [Suspect]
     Indication: VERTEBRAL ARTERY STENOSIS
     Dosage: 200 MG MILLIGRAM(S), UNK
     Route: 048
     Dates: start: 20111117
  2. JANUMET [Concomitant]
     Dosage: UNK
     Route: 048
  3. GLUFAST [Concomitant]
     Dosage: UNK
     Route: 048
  4. LIPINON [Concomitant]
     Dosage: UNK
     Route: 048
  5. GASLON-N [Concomitant]
     Dosage: UNK
     Route: 048

REACTIONS (1)
  - Transient ischaemic attack [Recovered/Resolved]
